FAERS Safety Report 24169974 (Version 2)
Quarter: 2024Q3

REPORT INFORMATION
  Report Type: Spontaneous
  Country: DE (occurrence: DE)
  Receive Date: 20240803
  Receipt Date: 20240806
  Transmission Date: 20241016
  Serious: Yes (Congenital Anomaly)
  Sender: ABBVIE
  Company Number: None

PATIENT
  Sex: Female

DRUGS (7)
  1. ESCITALOPRAM [Suspect]
     Active Substance: ESCITALOPRAM OXALATE
     Indication: Anxiety disorder
     Dosage: 20 [MG/D ]/ INCREASED IN THE COURSE OF PREGNANCY FROM 15 TO 20 MG/D
     Route: 064
     Dates: end: 20240227
  2. ESCITALOPRAM [Suspect]
     Active Substance: ESCITALOPRAM OXALATE
     Indication: Anxiety disorder
     Dosage: 20 [MG/D ]/INCREASED IN THE COURSE OF PREGNANCY FROM 15 TO 20 MG/D
     Route: 064
     Dates: start: 20230605
  3. PROMETHAZINE [Concomitant]
     Active Substance: PROMETHAZINE HYDROCHLORIDE
     Indication: Panic attack
     Dosage: 25 [MG/D (BEI BEDARF) ]/ 25 MG AS NEEDED, STARTED AT GW 28.4 FOR AT LEAST 3 WEEKS, STOPPED BECAUSE O
     Route: 064
  4. Tavor [Concomitant]
     Indication: Anxiety disorder
     Dosage: 1 [MG/D ]/ SPORADICALLY, 0.5-1 MG TWICE A WEEK
     Route: 064
  5. Rennie [Concomitant]
     Indication: Dyspepsia
     Dosage: NEEDED ALMOST DAILY
     Route: 064
  6. ACETAMINOPHEN [Concomitant]
     Active Substance: ACETAMINOPHEN
     Indication: Headache
     Dosage: 1000 [MG/D (1-2X/WK) ]/ 1000 MG/D 1-2X/WEEK
     Route: 064
  7. IBUPROFEN [Concomitant]
     Active Substance: IBUPROFEN
     Indication: Migraine
     Dosage: 400 [MG/D ]/ 200-400 MG/D 1-2X PER WEEK; AGAINST MIGRAINE AND HEADACHE
     Route: 064

REACTIONS (4)
  - Atrial septal defect [Recovering/Resolving]
  - Mitral valve incompetence [Unknown]
  - Foetal exposure during pregnancy [Unknown]
  - Ventricular septal defect [Recovering/Resolving]
